FAERS Safety Report 5609797-6 (Version None)
Quarter: 2008Q1

REPORT INFORMATION
  Report Type: 
  Country: None (occurrence: None)
  Receive Date: 20080131
  Receipt Date: 20071121
  Transmission Date: 20080703
  Serious: No
  Sender: FDA-Public Use
  Company Number: US-BAYER-200713895BCC

PATIENT
  Age: 81 Year
  Sex: Female
  Weight: 73 kg

DRUGS (4)
  1. ALEVE COLD AND SINUS [Suspect]
     Indication: NASOPHARYNGITIS
     Route: 048
     Dates: start: 20071119, end: 20071119
  2. ALEVE COLD AND SINUS [Suspect]
     Route: 048
     Dates: start: 20071120
  3. COZAAR [Concomitant]
  4. CALCIUM GLUCONATE [Concomitant]

REACTIONS (1)
  - EPISTAXIS [None]
